FAERS Safety Report 7033334-5 (Version None)
Quarter: 2010Q4

REPORT INFORMATION
  Report Type: 
  Country: None (occurrence: None)
  Receive Date: 20101007
  Receipt Date: 20101001
  Transmission Date: 20110411
  Serious: Yes (Hospitalization, Other)
  Sender: FDA-Public Use
  Company Number: ES-BRISTOL-MYERS SQUIBB COMPANY-15318603

PATIENT
  Age: 84 Year
  Sex: Female

DRUGS (14)
  1. APROVEL [Suspect]
  2. PRAVASTATIN SODIUM [Suspect]
  3. ACETYLSALICYLIC ACID SRT [Suspect]
  4. FLAGYL [Suspect]
     Indication: LUNG INFECTION
     Dosage: DURATION:6DAYS
  5. METFORMIN HCL [Suspect]
  6. CLAFORAN [Suspect]
     Indication: LUNG INFECTION
     Dosage: DURATION:8DAYS
  7. AMLODIPINE [Suspect]
  8. LERCANIDIPINE [Concomitant]
  9. GLICLAZIDE [Concomitant]
  10. CANDESARTAN CILEXETIL [Concomitant]
  11. PANTOPRAZOLE [Concomitant]
  12. TORASEMIDE [Concomitant]
  13. PAROXETINE [Concomitant]
  14. DOXAZOSIN MESYLATE [Concomitant]

REACTIONS (5)
  - CARDIAC FAILURE [None]
  - HYPERKALAEMIA [None]
  - LUNG INFECTION [None]
  - RENAL IMPAIRMENT [None]
  - RENAL TUBULAR NECROSIS [None]
